FAERS Safety Report 5201410-5 (Version None)
Quarter: 2007Q1

REPORT INFORMATION
  Report Type: 
  Country: None (occurrence: None)
  Receive Date: 20070108
  Receipt Date: 20061211
  Transmission Date: 20070707
  Serious: Yes (Hospitalization, Other)
  Sender: FDA-Public Use
  Company Number: US-PFIZER INC-2006153179

PATIENT
  Sex: Male
  Weight: 113.4 kg

DRUGS (1)
  1. BEXTRA [Suspect]
     Indication: ARTHRITIS

REACTIONS (7)
  - AMNESIA [None]
  - ANXIETY [None]
  - CEREBROVASCULAR ACCIDENT [None]
  - DYSARTHRIA [None]
  - HEADACHE [None]
  - IMPAIRED WORK ABILITY [None]
  - MUSCULAR WEAKNESS [None]
